FAERS Safety Report 5027005-4 (Version None)
Quarter: 2006Q2

REPORT INFORMATION
  Report Type: 
  Country: None (occurrence: None)
  Receive Date: 20060615
  Receipt Date: 20051011
  Transmission Date: 20061013
  Serious: Yes (Other)
  Sender: FDA-Public Use
  Company Number: PHHO2005CA16302

PATIENT
  Age: 61 Year
  Sex: Female

DRUGS (7)
  1. PAMIDRONATE DISODIUM [Concomitant]
  2. HYDROMORPHONE HCL [Concomitant]
  3. ANALGESICS [Concomitant]
  4. ZOMETA [Suspect]
     Indication: BREAST CANCER
     Dosage: 4 MG ONCE MONTHLY
     Route: 042
     Dates: start: 20050821
  5. CALCIUM GLUCONATE [Concomitant]
  6. VITAMIN D [Concomitant]
  7. XELODA [Concomitant]

REACTIONS (4)
  - JAW FRACTURE [None]
  - METASTASES TO BONE [None]
  - METASTASES TO CENTRAL NERVOUS SYSTEM [None]
  - OSTEONECROSIS [None]
